FAERS Safety Report 17458422 (Version 62)
Quarter: 2022Q3

REPORT INFORMATION
  Report Type: Report from Study
  Country: US (occurrence: US)
  Receive Date: 20200225
  Receipt Date: 20220906
  Transmission Date: 20221027
  Serious: Yes (Hospitalization, Other)
  Sender: FDA-Public Use
  Company Number: US-NOVARTISPH-NVSC2020US048927

PATIENT
  Age: 45 Year
  Sex: Female
  Weight: 117.93 kg

DRUGS (30)
  1. TREPROSTINIL [Suspect]
     Active Substance: TREPROSTINIL
     Indication: Pulmonary arterial hypertension
     Dosage: 60 NG/KG/MIN, CONT
     Route: 042
     Dates: start: 20190813
  2. TREPROSTINIL [Suspect]
     Active Substance: TREPROSTINIL
     Dosage: 57 NG/KG/MIN, CONT
     Route: 058
  3. TREPROSTINIL [Suspect]
     Active Substance: TREPROSTINIL
     Dosage: 60 NG/KG/MIN, CONT
     Route: 042
  4. TREPROSTINIL [Suspect]
     Active Substance: TREPROSTINIL
     Dosage: 60 NG/KG/MIN, CONT
     Route: 042
  5. TREPROSTINIL [Suspect]
     Active Substance: TREPROSTINIL
     Dosage: 60 NG/KG/MIN, CONT
     Route: 042
  6. TREPROSTINIL [Suspect]
     Active Substance: TREPROSTINIL
     Dosage: 61 NG/KG/MIN, CONT
     Route: 042
  7. TREPROSTINIL [Suspect]
     Active Substance: TREPROSTINIL
     Dosage: 60 NG/KG/MIN, CONT STRENGTH 2.5 MG/ML
     Route: 042
  8. TREPROSTINIL [Suspect]
     Active Substance: TREPROSTINIL
     Dosage: 87 NG/KG/MIN, CONT (5 MG/ML)
     Route: 042
  9. TREPROSTINIL [Suspect]
     Active Substance: TREPROSTINIL
     Dosage: 89.5 NG/KG/MIN, CONT, (STRENGTH: 5 MG/ML)
     Route: 042
  10. TREPROSTINIL [Suspect]
     Active Substance: TREPROSTINIL
     Dosage: 50 NG/KG/MIN, CONT
     Route: 042
     Dates: start: 20210325
  11. TREPROSTINIL [Suspect]
     Active Substance: TREPROSTINIL
     Dosage: 57 NG/KG/MIN, CONT
     Route: 042
  12. TREPROSTINIL [Suspect]
     Active Substance: TREPROSTINIL
     Dosage: (57 NG/KG/MIN), CONT
     Route: 042
  13. TREPROSTINIL [Suspect]
     Active Substance: TREPROSTINIL
     Dosage: 57 NG/KG/MIN, CONT
     Route: 042
  14. TREPROSTINIL [Suspect]
     Active Substance: TREPROSTINIL
     Dosage: 60 NG/KG/MIN
     Route: 030
  15. TREPROSTINIL [Suspect]
     Active Substance: TREPROSTINIL
     Dosage: 60 NG/KG/MIN, CONT
     Route: 042
  16. TREPROSTINIL [Suspect]
     Active Substance: TREPROSTINIL
     Dosage: 65 NG/KG/MIN, CONT
     Route: 042
  17. TREPROSTINIL [Suspect]
     Active Substance: TREPROSTINIL
     Dosage: 87 NG/KG/MIN - INT
     Route: 042
  18. TREPROSTINIL [Suspect]
     Active Substance: TREPROSTINIL
     Dosage: 66 NG/KG/MIN, CONT
     Route: 042
  19. TREPROSTINIL [Suspect]
     Active Substance: TREPROSTINIL
     Dosage: 70 NG/KG/MIN, CONT
     Route: 042
  20. TREPROSTINIL [Suspect]
     Active Substance: TREPROSTINIL
     Dosage: 74.5 NG/KG/MIN, CONT
     Route: 042
  21. TREPROSTINIL [Suspect]
     Active Substance: TREPROSTINIL
     Dosage: 97 NG/KG/MIN, CONT
     Route: 042
  22. TREPROSTINIL [Suspect]
     Active Substance: TREPROSTINIL
     Dosage: 97 NG/KG/MIN, CONT
     Route: 042
  23. TREPROSTINIL [Suspect]
     Active Substance: TREPROSTINIL
     Dosage: 97 NG/KG/MIN, CONT (STRENGTH:5 MG/ML)
     Route: 042
  24. REMODULIN [Suspect]
     Active Substance: TREPROSTINIL
     Indication: Product used for unknown indication
     Dosage: UNK
     Route: 065
  25. TADALAFIL [Suspect]
     Active Substance: TADALAFIL
     Indication: Product used for unknown indication
     Dosage: UNK
     Route: 065
  26. OPSUMIT [Suspect]
     Active Substance: MACITENTAN
     Indication: Product used for unknown indication
     Dosage: UNK
     Route: 065
  27. ADEMPAS [Suspect]
     Active Substance: RIOCIGUAT
     Indication: Product used for unknown indication
     Dosage: UNK
     Route: 065
  28. ADEMPAS [Suspect]
     Active Substance: RIOCIGUAT
     Dosage: 1 MG, TID
     Route: 065
  29. ADEMPAS [Suspect]
     Active Substance: RIOCIGUAT
     Dosage: UNK
     Route: 065
     Dates: end: 20210303
  30. ADEMPAS [Suspect]
     Active Substance: RIOCIGUAT
     Dosage: UNK
     Route: 065
     Dates: end: 202201

REACTIONS (54)
  - Syncope [Unknown]
  - Migraine [Unknown]
  - Hypervolaemia [Unknown]
  - Mental status changes [Unknown]
  - Complication associated with device [Unknown]
  - Dehydration [Unknown]
  - Arthropathy [Unknown]
  - Pericardial effusion [Unknown]
  - Pleural effusion [Unknown]
  - Chest pain [Unknown]
  - Urinary tract infection [Unknown]
  - Headache [Unknown]
  - Cluster headache [Unknown]
  - Cardiac failure acute [Unknown]
  - Cardiac failure [Unknown]
  - Dyspnoea [Unknown]
  - Dizziness [Unknown]
  - Oedema [Unknown]
  - Nausea [Unknown]
  - Abdominal pain [Unknown]
  - Hypotension [Unknown]
  - Vomiting [Unknown]
  - Jugular vein haemorrhage [Unknown]
  - Condition aggravated [Unknown]
  - Vascular device occlusion [Unknown]
  - Pulmonary arterial hypertension [Unknown]
  - Device difficult to use [Unknown]
  - Malaise [Unknown]
  - Post procedural discomfort [Unknown]
  - Post procedural pruritus [Unknown]
  - Speech disorder [Unknown]
  - Dysarthria [Unknown]
  - Insomnia [Unknown]
  - Pain [Unknown]
  - Dysstasia [Unknown]
  - Cardiac output increased [Unknown]
  - Pain in extremity [Unknown]
  - Muscle spasms [Unknown]
  - Eye colour change [Unknown]
  - Hypertension [Unknown]
  - Confusional state [Unknown]
  - Hyperhidrosis [Unknown]
  - Myalgia [Unknown]
  - Ligament sprain [Unknown]
  - Arthralgia [Unknown]
  - Pruritus [Unknown]
  - Rash [Unknown]
  - Injection site pain [Unknown]
  - Infusion site extravasation [Unknown]
  - Infusion site pain [Unknown]
  - Injection site mass [Unknown]
  - Product dose omission issue [Unknown]
  - Incorrect dose administered [Unknown]
  - Incorrect route of product administration [Unknown]

NARRATIVE: CASE EVENT DATE: 20200206
